FAERS Safety Report 6831714-1 (Version None)
Quarter: 2010Q3

REPORT INFORMATION
  Report Type: 
  Country: None (occurrence: None)
  Receive Date: 20100712
  Receipt Date: 20100628
  Transmission Date: 20110219
  Serious: Yes (Hospitalization, Other)
  Sender: FDA-Public Use
  Company Number: CA-GENENTECH-272135

PATIENT
  Sex: Male
  Weight: 69 kg

DRUGS (12)
  1. OMALIZUMAB [Suspect]
     Indication: ASTHMA
     Dosage: 375 MG, Q2W
     Route: 058
     Dates: start: 20080806
  2. OMALIZUMAB [Suspect]
     Dosage: 375 MG, Q2W
     Route: 058
     Dates: start: 20100208
  3. OMALIZUMAB [Suspect]
     Dosage: 375 MG, UNK
     Route: 058
     Dates: start: 20100222
  4. ACETAMINOPHEN [Concomitant]
     Indication: PRODUCT USED FOR UNKNOWN INDICATION
  5. CALCITONIN [Concomitant]
     Indication: PRODUCT USED FOR UNKNOWN INDICATION
  6. PREDNISONE [Concomitant]
     Indication: PRODUCT USED FOR UNKNOWN INDICATION
  7. ADVAIR DISKUS 100/50 [Concomitant]
     Indication: PRODUCT USED FOR UNKNOWN INDICATION
  8. SINGULAIR [Concomitant]
     Indication: PRODUCT USED FOR UNKNOWN INDICATION
  9. VENTOLIN [Concomitant]
     Indication: PRODUCT USED FOR UNKNOWN INDICATION
  10. SPIRIVA [Concomitant]
     Indication: PRODUCT USED FOR UNKNOWN INDICATION
  11. SYMBICORT [Concomitant]
     Indication: PRODUCT USED FOR UNKNOWN INDICATION
  12. BRICANYL [Concomitant]
     Indication: PRODUCT USED FOR UNKNOWN INDICATION

REACTIONS (20)
  - ASTHMA [None]
  - BLOOD PRESSURE INCREASED [None]
  - BONE PAIN [None]
  - BRONCHITIS [None]
  - COUGH [None]
  - DEBRIDEMENT [None]
  - DIZZINESS [None]
  - DYSPNOEA [None]
  - HEADACHE [None]
  - HEART RATE INCREASED [None]
  - MALAISE [None]
  - MOVEMENT DISORDER [None]
  - NAUSEA [None]
  - OEDEMA [None]
  - PNEUMOCOCCAL INFECTION [None]
  - PNEUMONIA [None]
  - RESPIRATORY RATE INCREASED [None]
  - RIB FRACTURE [None]
  - VOMITING [None]
  - X-RAY ABNORMAL [None]
